FAERS Safety Report 6640844-9 (Version None)
Quarter: 2010Q1

REPORT INFORMATION
  Report Type: 
  Country: None (occurrence: None)
  Receive Date: 20100318
  Receipt Date: 20100308
  Transmission Date: 20100710
  Serious: Yes (Other)
  Sender: FDA-Public Use
  Company Number: GB-PFIZER INC-2009311322

PATIENT
  Sex: Female
  Weight: 66 kg

DRUGS (2)
  1. CHAMPIX [Suspect]
     Indication: SMOKING CESSATION THERAPY
     Dosage: 2 MG, 1X/DAY
     Route: 048
     Dates: start: 20091001, end: 20100201
  2. BLACK COHOSH [Interacting]
     Indication: MENOPAUSE
     Dosage: 40 MG, 4X/DAY
     Dates: start: 20090101

REACTIONS (2)
  - BLOOD CARBON MONOXIDE INCREASED [None]
  - DRUG INTERACTION [None]
